FAERS Safety Report 23133692 (Version 2)
Quarter: 2024Q4

REPORT INFORMATION
  Report Type: Report from Study
  Country: US (occurrence: US)
  Receive Date: 20231101
  Receipt Date: 20241125
  Transmission Date: 20250115
  Serious: Yes (Life-Threatening, Hospitalization, Other)
  Sender: UCB
  Company Number: US-UCBSA-2023044796

PATIENT
  Age: 0 Year
  Sex: Female

DRUGS (4)
  1. FINTEPLA [Suspect]
     Active Substance: FENFLURAMINE
     Indication: Severe myoclonic epilepsy of infancy
     Dosage: 1.4 MILLILITER, 2X/DAY (BID)
     Dates: start: 20230815
  2. FINTEPLA [Suspect]
     Active Substance: FENFLURAMINE
     Dosage: 0.7 MILLILITER, 2X/DAY (BID)
     Dates: start: 20230816
  3. LEVETIRACETAM [Suspect]
     Active Substance: LEVETIRACETAM
     Indication: Epilepsy
     Dosage: 2.4 MILLILITER, 2X/DAY (BID)
     Route: 048
     Dates: start: 202305
  4. EPIDIOLEX [Concomitant]
     Active Substance: CANNABIDIOL
     Indication: Severe myoclonic epilepsy of infancy
     Dosage: 0.6 MILLILITER, 2X/DAY (BID)
     Route: 048
     Dates: start: 202307

REACTIONS (4)
  - Seizure [Recovered/Resolved]
  - Endotracheal intubation [Recovered/Resolved]
  - Ketogenic diet [Recovered/Resolved]
  - Off label use [Unknown]

NARRATIVE: CASE EVENT DATE: 20230816
